FAERS Safety Report 14519186 (Version 2)
Quarter: 2018Q1

REPORT INFORMATION
  Report Type: Spontaneous
  Country: BR (occurrence: BR)
  Receive Date: 20180212
  Receipt Date: 20180214
  Transmission Date: 20180509
  Serious: Yes (Other)
  Sender: FDA-Public Use
  Company Number: BR-PFIZER INC-2018058348

PATIENT
  Age: 70 Year
  Sex: Female
  Weight: 60 kg

DRUGS (13)
  1. GLIFAGE [Concomitant]
     Active Substance: METFORMIN HYDROCHLORIDE
     Indication: DIABETES MELLITUS
     Dosage: UNK
  2. SINVASTACOR [Concomitant]
     Active Substance: SIMVASTATIN
     Indication: BLOOD CHOLESTEROL INCREASED
     Dosage: 5 MG, DAILY (1 TABLET AT NIGHT)
  3. VITAMIN D /00107901/ [Concomitant]
     Active Substance: ERGOCALCIFEROL
     Dosage: 1 TABLET 30 MINUTES BEFORE LUNCH
  4. OMEPRAZOLE. [Concomitant]
     Active Substance: OMEPRAZOLE
     Indication: GASTRITIS
     Dosage: 1 CAPSULE IN THE MORNING
  5. DEXAMETHASONE. [Concomitant]
     Active Substance: DEXAMETHASONE
     Indication: PRURITUS ALLERGIC
     Dosage: UNK, 2X/DAY
  6. SERTRALINE [Concomitant]
     Active Substance: SERTRALINE HYDROCHLORIDE
     Indication: DEPRESSION
     Dosage: ONE-QUARTER OF 1 TABLET AT NIGHT
  7. PROCTYL [Concomitant]
     Active Substance: DIBUCAINE\POLICRESULEN
     Indication: CONSTIPATION
  8. CELECOXIBE TEUTO [Suspect]
     Active Substance: CELECOXIB
     Indication: ARTHRALGIA
     Dosage: 200 MG (1 CAPSULE, AFTER LUNCH)
     Dates: start: 2017
  9. ARADOIS [Concomitant]
     Active Substance: LOSARTAN POTASSIUM
     Indication: HYPERTENSION
     Dosage: 2 TABLETS DAILY
  10. CLOB-X [Concomitant]
     Indication: PRURITUS
  11. HIXIZINE [Concomitant]
     Active Substance: HYDROXYZINE HYDROCHLORIDE
     Indication: IMMUNE SYSTEM DISORDER
     Dosage: 6.25 MG (ONE-QUARTER OF 1 TABLET AT NIGHT)
  12. SIMETHICONE (DIMETHICONE) [Concomitant]
     Active Substance: DIMETHICONE
     Indication: CONSTIPATION
     Dosage: 20 DROPS IN THE MORNING
  13. PREDNISOLONE. [Concomitant]
     Active Substance: PREDNISOLONE
     Dosage: EVERY 12 HOURS

REACTIONS (4)
  - Hepatic steatosis [Unknown]
  - Intentional product misuse [Unknown]
  - Neoplasm malignant [Unknown]
  - Cholecystitis chronic [Unknown]

NARRATIVE: CASE EVENT DATE: 20170830
